FAERS Safety Report 21245626 (Version 2)
Quarter: 2022Q3

REPORT INFORMATION
  Report Type: Spontaneous
  Country: DE (occurrence: DE)
  Receive Date: 20220824
  Receipt Date: 20220907
  Transmission Date: 20221026
  Serious: Yes (Hospitalization, Other)
  Sender: FDA-Public Use
  Company Number: DE-PFIZER INC-PV202200038650

PATIENT
  Age: 13 Day
  Sex: Female
  Weight: 3.25 kg

DRUGS (6)
  1. AMIODARONE [Interacting]
     Active Substance: AMIODARONE
     Indication: Tuberous sclerosis complex
     Dosage: UNK (CONTINUOUS INFUSION)
     Route: 065
  2. AMIODARONE [Interacting]
     Active Substance: AMIODARONE
     Indication: Supraventricular tachycardia
  3. AMIODARONE [Interacting]
     Active Substance: AMIODARONE
     Indication: Rhabdomyoma
  4. SIROLIMUS [Interacting]
     Active Substance: SIROLIMUS
     Indication: Tuberous sclerosis complex
     Dosage: 0.8 MILLIGRAM/SQ. METER, ONCE A DAY(0.4 MG/M2/DOSE, 2X/DAY)
     Route: 065
  5. SIROLIMUS [Interacting]
     Active Substance: SIROLIMUS
     Indication: Ventricular tachycardia
  6. SIROLIMUS [Interacting]
     Active Substance: SIROLIMUS
     Indication: Rhabdomyoma

REACTIONS (5)
  - Toxicity to various agents [Recovered/Resolved]
  - Drug interaction [Recovered/Resolved]
  - Immunosuppressant drug level increased [Recovered/Resolved]
  - Off label use [Unknown]
  - Drug effective for unapproved indication [Unknown]
